FAERS Safety Report 7411869-0 (Version None)
Quarter: 2011Q2

REPORT INFORMATION
  Report Type: 
  Country: None (occurrence: None)
  Receive Date: 20110405
  Receipt Date: 20110325
  Transmission Date: 20111010
  Serious: Yes (Life-Threatening)
  Sender: FDA-Public Use
  Company Number: 874021

PATIENT
  Age: 74 Year
  Sex: Female

DRUGS (6)
  1. (LANSOX) [Concomitant]
  2. (PRITOR /01102601/) [Concomitant]
  3. MERREM [Concomitant]
  4. VANCOMYCIN HYDROCHLORIDE [Suspect]
     Indication: URINARY TRACT INFECTION
     Dosage: 2 G GRAM(S), INTRAVENOUS
     Route: 042
     Dates: start: 20110323, end: 20110323
  5. (BRONCOVALEAS /00139501/) [Concomitant]
  6. (OXIVENT) [Concomitant]

REACTIONS (5)
  - BRONCHOSPASM [None]
  - HYPOTENSION [None]
  - LARYNGEAL OEDEMA [None]
  - ANAPHYLACTIC SHOCK [None]
  - BRADYCARDIA [None]
